FAERS Safety Report 5730667-7 (Version None)
Quarter: 2008Q2

REPORT INFORMATION
  Report Type: 
  Country: None (occurrence: None)
  Receive Date: 20080507
  Receipt Date: 20080430
  Transmission Date: 20081010
  Serious: Yes (Hospitalization)
  Sender: FDA-Public Use
  Company Number: CA-ASTRAZENECA-2008UW08787

PATIENT
  Age: 26423 Day
  Sex: Male

DRUGS (6)
  1. ESOMEPRAZOLE [Suspect]
     Indication: GASTRODUODENAL ULCER
     Route: 048
     Dates: start: 20080115
  2. ASPIRIN [Concomitant]
     Indication: CARDIOVASCULAR DISORDER
  3. INDERAL LA [Concomitant]
     Indication: MYOCARDIAL ISCHAEMIA
  4. ACCUPRIL [Concomitant]
     Indication: HYPERTENSION
  5. LIPITOR [Concomitant]
     Indication: HYPERLIPIDAEMIA
  6. COLCHICINE [Concomitant]
     Indication: GOUT

REACTIONS (1)
  - PANCREATITIS ACUTE [None]
